FAERS Safety Report 4612223-7 (Version None)
Quarter: 2005Q1

REPORT INFORMATION
  Report Type: 
  Country: None (occurrence: None)
  Receive Date: 20050316
  Receipt Date: 20050301
  Transmission Date: 20050727
  Serious: Yes (Death)
  Sender: FDA-Public Use
  Company Number: US_0503113751

PATIENT
  Age: 39 Year

DRUGS (3)
  1. ZYPREXA [Suspect]
     Dates: end: 20030101
  2. ACETAMINOPHEN W/ PROPOXYPHENE HCL [Concomitant]
  3. DIPHENHYDRAMINE HCL [Concomitant]

REACTIONS (2)
  - COMPLETED SUICIDE [None]
  - INTENTIONAL MISUSE [None]
